FAERS Safety Report 5739387-6 (Version None)
Quarter: 2008Q2

REPORT INFORMATION
  Report Type: 
  Country: None (occurrence: None)
  Receive Date: 20080515
  Receipt Date: 20080507
  Transmission Date: 20081010
  Serious: Yes (Life-Threatening, Other)
  Sender: FDA-Public Use
  Company Number: US-PFIZER INC-2008032094

PATIENT
  Sex: Female
  Weight: 58.5 kg

DRUGS (1)
  1. SUTENT [Suspect]
     Indication: METASTATIC RENAL CELL CARCINOMA
     Route: 048
     Dates: start: 20071005, end: 20071102

REACTIONS (3)
  - DIALYSIS [None]
  - HYPERTENSION [None]
  - RENAL FAILURE [None]
